FAERS Safety Report 8743517 (Version 4)
Quarter: 2013Q1

REPORT INFORMATION
  Report Type: Spontaneous
  Country: CO (occurrence: CO)
  Receive Date: 20120824
  Receipt Date: 20130208
  Transmission Date: 20140127
  Serious: Yes (Death, Life-Threatening, Hospitalization, Disabling, Other)
  Sender: FDA-Public Use
  Company Number: CO-UCBSA-064208

PATIENT
  Age: 71 Year
  Sex: Female

DRUGS (3)
  1. CIMZIA [Suspect]
     Indication: RHEUMATOID ARTHRITIS
     Dosage: DOSE: 400 MG (FIRST DOSE)
     Route: 058
     Dates: start: 20120731
  2. PREDNISOLONE [Concomitant]
     Indication: RHEUMATOID ARTHRITIS
     Dosage: UNKNOWN
     Route: 048
  3. METHOTREXATE [Concomitant]
     Indication: RHEUMATOID ARTHRITIS
     Dosage: UNKNOWN
     Route: 048

REACTIONS (14)
  - Respiratory arrest [Fatal]
  - Meningitis bacterial [Not Recovered/Not Resolved]
  - Headache [Unknown]
  - Neurological decompensation [Not Recovered/Not Resolved]
  - Generalised oedema [Not Recovered/Not Resolved]
  - Multi-organ failure [Not Recovered/Not Resolved]
  - Hyperglycaemia [Unknown]
  - Renal failure [Not Recovered/Not Resolved]
  - Nervous system disorder [Not Recovered/Not Resolved]
  - Sinusitis [Not Recovered/Not Resolved]
  - Candida infection [Not Recovered/Not Resolved]
  - Sepsis [Unknown]
  - Stupor [Unknown]
  - Epistaxis [Unknown]
